FAERS Safety Report 6730465-1 (Version None)
Quarter: 2010Q2

REPORT INFORMATION
  Report Type: 
  Country: None (occurrence: None)
  Receive Date: 20100518
  Receipt Date: 20100510
  Transmission Date: 20101027
  Serious: Yes (Other)
  Sender: FDA-Public Use
  Company Number: US-ASTRAZENECA-2010SE21146

PATIENT
  Sex: Female

DRUGS (1)
  1. SYMBICORT [Suspect]
     Indication: COUGH
     Route: 055
     Dates: start: 20100501

REACTIONS (3)
  - COUGH [None]
  - DRUG DOSE OMISSION [None]
  - HAEMOPTYSIS [None]
